FAERS Safety Report 4751245-2 (Version None)
Quarter: 2005Q3

REPORT INFORMATION
  Report Type: 
  Country: None (occurrence: None)
  Receive Date: 20050822
  Receipt Date: 20050812
  Transmission Date: 20060218
  Serious: Yes (Death, Hospitalization)
  Sender: FDA-Public Use
  Company Number: US-2005-016554

PATIENT
  Age: 73 Year

DRUGS (9)
  1. CAMPATH [Suspect]
     Indication: CHRONIC LYMPHOCYTIC LEUKAEMIA
     Dosage: 3X/WEEK
     Dates: start: 20050418, end: 20050620
  2. BACTRIM DS [Concomitant]
  3. ACETYLSALICYLIC ACID SRT [Concomitant]
  4. VALCYTE [Concomitant]
  5. VICODIN [Concomitant]
  6. HYCODAN [Concomitant]
  7. MULTIVITAMINS (PANTHENOL, RETINOL) [Concomitant]
  8. ZANTAC [Concomitant]
  9. UROXATRAL [Concomitant]

REACTIONS (2)
  - ALVEOLAR PROTEINOSIS [None]
  - PNEUMONIA [None]
